FAERS Safety Report 5068845-5 (Version None)
Quarter: 2006Q3

REPORT INFORMATION
  Report Type: 
  Country: None (occurrence: None)
  Receive Date: 20060802
  Receipt Date: 20060502
  Transmission Date: 20061208
  Serious: No
  Sender: FDA-Public Use
  Company Number: US-BRISTOL-MYERS SQUIBB COMPANY-13363494

PATIENT
  Age: 72 Year
  Sex: Female
  Weight: 75 kg

DRUGS (4)
  1. COUMADIN [Suspect]
     Indication: THROMBOSIS
     Dosage: DURATION: 4 - 5 YEARS
  2. SYNTHROID [Concomitant]
  3. PRAVACHOL [Concomitant]
  4. NEURONTIN [Concomitant]

REACTIONS (1)
  - ERYTHEMA [None]
